FAERS Safety Report 20956368 (Version 2)
Quarter: 2022Q3

REPORT INFORMATION
  Report Type: Other
  Country: DE (occurrence: DE)
  Receive Date: 20220614
  Receipt Date: 20220702
  Transmission Date: 20221027
  Serious: Yes (Other)
  Sender: FDA-Public Use
  Company Number: None

PATIENT
  Age: 58 Year
  Sex: Male

DRUGS (12)
  1. DULOXETINE [Suspect]
     Active Substance: DULOXETINE
     Indication: Product used for unknown indication
     Dosage: 30 MG, QD
     Route: 048
     Dates: start: 20200615, end: 20210612
  2. DULOXETINE [Suspect]
     Active Substance: DULOXETINE
     Dosage: 60 MG, QD
     Route: 048
     Dates: start: 20210617
  3. OPIPRAMOL [Suspect]
     Active Substance: OPIPRAMOL
     Indication: Product used for unknown indication
     Dosage: 50 MG, QD
     Route: 048
     Dates: start: 20210530, end: 20210610
  4. OPIPRAMOL [Suspect]
     Active Substance: OPIPRAMOL
     Dosage: 75 MG, QD
     Route: 048
     Dates: start: 20210611, end: 20210612
  5. OPIPRAMOL [Suspect]
     Active Substance: OPIPRAMOL
     Dosage: 100 MG, QD
     Route: 048
     Dates: start: 20210613, end: 20210708
  6. OPIPRAMOL [Suspect]
     Active Substance: OPIPRAMOL
     Dosage: 50 MG, QD
     Route: 048
     Dates: start: 20210709, end: 20210713
  7. METAMIZOL [Suspect]
     Active Substance: METAMIZOLE SODIUM
     Indication: Product used for unknown indication
     Dosage: UNK (750 MG - 2225 MG )
     Route: 048
     Dates: start: 20210603, end: 20210618
  8. METAMIZOL [Suspect]
     Active Substance: METAMIZOLE SODIUM
     Dosage: 750 MG, QD
     Route: 048
     Dates: start: 20210620
  9. METAMIZOL [Suspect]
     Active Substance: METAMIZOLE SODIUM
     Dosage: 750 MG, QD
     Route: 048
     Dates: start: 20210622
  10. METAMIZOL [Suspect]
     Active Substance: METAMIZOLE SODIUM
     Dosage: 750 MG, QD
     Route: 048
     Dates: start: 20210628
  11. METAMIZOL [Suspect]
     Active Substance: METAMIZOLE SODIUM
     Dosage: 750 MG, QD
     Route: 048
     Dates: start: 20210704
  12. METAMIZOL [Suspect]
     Active Substance: METAMIZOLE SODIUM
     Dosage: 750 MG, QD
     Route: 048
     Dates: start: 20210705

REACTIONS (2)
  - Alanine aminotransferase increased [Recovering/Resolving]
  - Aspartate aminotransferase increased [Recovering/Resolving]

NARRATIVE: CASE EVENT DATE: 20210713
